FAERS Safety Report 8128031-9 (Version None)
Quarter: 2012Q1

REPORT INFORMATION
  Report Type: 
  Country: None (occurrence: None)
  Receive Date: 20120210
  Receipt Date: 20120201
  Transmission Date: 20120608
  Serious: Yes (Hospitalization, Other)
  Sender: FDA-Public Use
  Company Number: HR-JNJFOC-20120203004

PATIENT
  Sex: Male

DRUGS (12)
  1. RISPERIDONE [Suspect]
     Route: 030
     Dates: start: 20080501, end: 20081021
  2. LAMEPTIL [Suspect]
     Indication: PRODUCT USED FOR UNKNOWN INDICATION
     Dosage: 50 MG,0,50 MG
     Route: 065
  3. RISPERIDONE [Suspect]
     Route: 030
     Dates: start: 20090807, end: 20101108
  4. CLOZAPINE [Suspect]
     Indication: SCHIZOPHRENIA
     Dosage: 50 MG,50 MG,75 MG
     Route: 065
  5. RISPERIDONE [Suspect]
     Dosage: TABLET 1 MG, 3X1
     Route: 048
  6. RISPERIDONE [Suspect]
     Route: 030
     Dates: start: 20101108
  7. AKINETON [Suspect]
     Indication: PRODUCT USED FOR UNKNOWN INDICATION
     Dosage: TABLET 1-0-1
     Route: 065
  8. DIAZEPAM [Suspect]
     Indication: PRODUCT USED FOR UNKNOWN INDICATION
     Dosage: 3 X 10 MG
     Route: 065
  9. RISPERIDONE [Suspect]
     Indication: SCHIZOPHRENIA, PARANOID TYPE
     Route: 030
     Dates: start: 20080501
  10. AKINETON [Suspect]
     Dosage: 1,0,0 TABLET
     Route: 065
  11. RISPERIDONE [Suspect]
     Route: 030
     Dates: start: 20081021, end: 20090807
  12. RISPERIDONE [Suspect]
     Indication: PRODUCT USED FOR UNKNOWN INDICATION
     Dosage: 0, 0, 2 MG
     Route: 048

REACTIONS (2)
  - PSYCHOMOTOR HYPERACTIVITY [None]
  - ADVERSE EVENT [None]
